FAERS Safety Report 9138594 (Version 1)
Quarter: 2013Q1

REPORT INFORMATION
  Report Type: Spontaneous
  Country: US (occurrence: US)
  Receive Date: 20130305
  Receipt Date: 20130305
  Transmission Date: 20140127
  Serious: No
  Sender: FDA-Public Use
  Company Number: US-009507513-1303USA001243

PATIENT
  Age: 26 Year
  Sex: Female
  Weight: 122.45 kg

DRUGS (1)
  1. NUVARING [Suspect]
     Indication: CONTRACEPTION
     Dosage: 1 RING FOR 3 WEEKS
     Route: 067
     Dates: start: 2011

REACTIONS (2)
  - Muscle spasms [Unknown]
  - Withdrawal bleed [Unknown]
